FAERS Safety Report 7050556-8 (Version None)
Quarter: 2010Q4

REPORT INFORMATION
  Report Type: 
  Country: None (occurrence: None)
  Receive Date: 20101018
  Receipt Date: 20101008
  Transmission Date: 20110411
  Serious: Yes (Hospitalization)
  Sender: FDA-Public Use
  Company Number: US-BAXTER-2010BH024498

PATIENT
  Age: 79 Year
  Sex: Male

DRUGS (12)
  1. GAMMAGARD LIQUID [Suspect]
     Indication: MYASTHENIA GRAVIS
     Route: 042
     Dates: start: 20091101
  2. GAMMAGARD LIQUID [Suspect]
     Indication: OFF LABEL USE
     Route: 042
     Dates: start: 20091101
  3. GAMMAGARD LIQUID [Suspect]
     Route: 042
     Dates: start: 20100512, end: 20100512
  4. GAMMAGARD LIQUID [Suspect]
     Route: 042
     Dates: start: 20100512, end: 20100512
  5. GAMMAGARD LIQUID [Suspect]
     Route: 042
     Dates: start: 20100512, end: 20100512
  6. GAMMAGARD LIQUID [Suspect]
     Route: 042
     Dates: start: 20100512, end: 20100512
  7. GAMMAGARD LIQUID [Suspect]
     Route: 042
     Dates: start: 20100527, end: 20100527
  8. GAMMAGARD LIQUID [Suspect]
     Route: 042
     Dates: start: 20100527, end: 20100527
  9. GAMMAGARD LIQUID [Suspect]
     Route: 042
     Dates: start: 20100527, end: 20100527
  10. GAMMAGARD LIQUID [Suspect]
     Route: 042
     Dates: start: 20100527, end: 20100527
  11. TYLENOL-500 [Concomitant]
     Indication: PREMEDICATION
     Route: 048
  12. DIPHENHYDRAMINE HCL [Concomitant]
     Indication: PREMEDICATION
     Route: 048

REACTIONS (9)
  - CHILLS [None]
  - DIARRHOEA [None]
  - FATIGUE [None]
  - FLATULENCE [None]
  - FLUID RETENTION [None]
  - GASTROINTESTINAL DISORDER [None]
  - OEDEMA PERIPHERAL [None]
  - PROTEIN TOTAL DECREASED [None]
  - WHITE BLOOD CELL COUNT DECREASED [None]
